FAERS Safety Report 8832188 (Version 3)
Quarter: 2013Q1

REPORT INFORMATION
  Report Type: Spontaneous
  Country: US (occurrence: US)
  Receive Date: 20121009
  Receipt Date: 20130131
  Transmission Date: 20140127
  Serious: Yes (Hospitalization, Disabling, Other)
  Sender: FDA-Public Use
  Company Number: US-009507513-1205USA00965

PATIENT
  Sex: Female

DRUGS (5)
  1. FOSAMAX [Suspect]
     Indication: OSTEOPOROSIS
     Dosage: UNK
     Route: 048
     Dates: start: 20040819, end: 201003
  2. FOSAMAX D [Suspect]
     Route: 048
     Dates: start: 1995, end: 201003
  3. FOSAMAX [Suspect]
     Route: 048
     Dates: start: 1995, end: 201003
  4. VITAMINS (UNSPECIFIED) [Concomitant]
  5. ALENDRONATE SODIUM [Suspect]
     Dosage: 70 MG, UNK
     Route: 048

REACTIONS (23)
  - Femur fracture [Not Recovered/Not Resolved]
  - Breast cancer [Unknown]
  - Anaemia postoperative [Recovered/Resolved]
  - Intramedullary rod insertion [Unknown]
  - Low turnover osteopathy [Not Recovered/Not Resolved]
  - Fracture delayed union [Not Recovered/Not Resolved]
  - Endodontic procedure [Unknown]
  - Female sterilisation [Unknown]
  - Limb asymmetry [Recovered/Resolved]
  - Scoliosis [Unknown]
  - Osteoarthritis [Unknown]
  - Road traffic accident [Recovered/Resolved]
  - Contusion [Recovered/Resolved]
  - Scoliosis [Unknown]
  - Aortic arteriosclerosis [Unknown]
  - Symphysiolysis [Unknown]
  - Bone disorder [Unknown]
  - Gingival recession [Recovering/Resolving]
  - Gingivitis [Recovering/Resolving]
  - Tooth fracture [Unknown]
  - Tooth fracture [Unknown]
  - Gingival abscess [Unknown]
  - Endodontic procedure [Recovered/Resolved]
